FAERS Safety Report 25456400 (Version 1)
Quarter: 2025Q2

REPORT INFORMATION
  Report Type: Other
  Country: CN (occurrence: CN)
  Receive Date: 20250619
  Receipt Date: 20250619
  Transmission Date: 20250716
  Serious: Yes (Hospitalization)
  Sender: PARATEK PHARMACEUTICALS
  Company Number: CN-PARATEK PHARMACEUTICALS, INC.-2025PTK00716

PATIENT
  Age: 65 Year
  Sex: Male
  Weight: 58 kg

DRUGS (3)
  1. NUZYRA [Suspect]
     Active Substance: OMADACYCLINE
     Indication: Anti-infective therapy
     Dosage: 0.1 G, QD
     Route: 041
     Dates: start: 20250501, end: 20250507
  2. PIPERACILLIN AND TAZOBACTAM [Concomitant]
     Active Substance: PIPERACILLIN SODIUM\TAZOBACTAM SODIUM
  3. MEROPENEM [Concomitant]
     Active Substance: MEROPENEM

REACTIONS (5)
  - Decreased appetite [Recovering/Resolving]
  - Mental disorder [Recovering/Resolving]
  - Insomnia [Recovering/Resolving]
  - Vomiting [Recovering/Resolving]
  - Nausea [Recovering/Resolving]

NARRATIVE: CASE EVENT DATE: 20250501
